FAERS Safety Report 5593037-0 (Version None)
Quarter: 2007Q4

REPORT INFORMATION
  Report Type: 
  Country: None (occurrence: None)
  Receive Date: 20071217
  Receipt Date: 20071101
  Transmission Date: 20080405
  Serious: No
  Sender: FDA-Public Use
  Company Number: BDI-010487

PATIENT
  Sex: Female

DRUGS (2)
  1. MULTIHANCE [Suspect]
     Indication: NUCLEAR MAGNETIC RESONANCE IMAGING ABDOMINAL
     Dosage: 2 ML ONCE IV
     Route: 042
     Dates: start: 20071003, end: 20071003
  2. MULTIHANCE [Suspect]
     Indication: UTERINE LEIOMYOMA
     Dosage: 2 ML ONCE IV
     Route: 042
     Dates: start: 20071003, end: 20071003

REACTIONS (1)
  - HYPERSENSITIVITY [None]
